FAERS Safety Report 5995457-9 (Version None)
Quarter: 2008Q4

REPORT INFORMATION
  Report Type: 
  Country: None (occurrence: None)
  Receive Date: 20081212
  Receipt Date: 20080930
  Transmission Date: 20090506
  Serious: No
  Sender: FDA-Public Use
  Company Number: US-ABBOTT-08P-163-0478918-00

PATIENT
  Sex: Female
  Weight: 76.272 kg

DRUGS (7)
  1. HUMIRA [Suspect]
     Indication: RHEUMATOID ARTHRITIS
     Route: 058
     Dates: start: 20060101, end: 20080701
  2. HUMIRA [Suspect]
     Route: 058
     Dates: end: 20080901
  3. METHOTREXATE [Suspect]
     Indication: RHEUMATOID ARTHRITIS
     Dosage: 8 PILLS ONCE A WEEK
     Route: 048
     Dates: start: 20060101, end: 20080701
  4. METHOTREXATE [Suspect]
     Dosage: 20 MILLIGRAMS
     Route: 048
     Dates: start: 20060101
  5. LAMOTRIGINE [Concomitant]
     Indication: EPILEPSY
     Route: 048
  6. DIOVAN HCT [Concomitant]
     Indication: DRUG USE FOR UNKNOWN INDICATION
     Dosage: 160/12.5
     Route: 048
  7. FOLIC ACID [Concomitant]
     Indication: DRUG USE FOR UNKNOWN INDICATION
     Route: 048

REACTIONS (3)
  - HERPES ZOSTER [None]
  - PRURITUS [None]
  - SKIN BURNING SENSATION [None]
